FAERS Safety Report 24979374 (Version 3)
Quarter: 2025Q1

REPORT INFORMATION
  Report Type: Report from Study
  Country: US (occurrence: US)
  Receive Date: 20250218
  Receipt Date: 20250304
  Transmission Date: 20250409
  Serious: Yes (Hospitalization, Other)
  Sender: INSMED
  Company Number: US-INSMED-2023-02336-USAA

PATIENT
  Sex: Female

DRUGS (4)
  1. ARIKAYCE [Suspect]
     Active Substance: AMIKACIN
     Indication: Mycobacterial infection
     Dosage: 590 MILLIGRAM, QD
     Route: 055
     Dates: start: 202211, end: 202309
  2. ARIKAYCE [Suspect]
     Active Substance: AMIKACIN
     Dosage: 590 MILLIGRAM, QD
     Route: 055
     Dates: start: 2025, end: 2025
  3. CEFTAROLINE [Suspect]
     Active Substance: CEFTAROLINE
     Indication: Product used for unknown indication
     Route: 042
  4. AZITHROMYCIN [Concomitant]
     Active Substance: AZITHROMYCIN
     Indication: Product used for unknown indication
     Route: 065

REACTIONS (23)
  - Hospitalisation [Unknown]
  - Blood iron decreased [Unknown]
  - Aspergillus infection [Not Recovered/Not Resolved]
  - Pneumonia fungal [Unknown]
  - White blood cell count decreased [Unknown]
  - Deafness [Unknown]
  - Constipation [Unknown]
  - Weight increased [Recovered/Resolved]
  - Gliosis [Unknown]
  - Peripheral swelling [Recovered/Resolved]
  - Immune system disorder [Not Recovered/Not Resolved]
  - Cardiac disorder [Unknown]
  - Ocular discomfort [Unknown]
  - Ill-defined disorder [Unknown]
  - Sputum increased [Unknown]
  - Head discomfort [Unknown]
  - Adverse drug reaction [Not Recovered/Not Resolved]
  - Cough [Unknown]
  - Fatigue [Not Recovered/Not Resolved]
  - Tinnitus [Unknown]
  - Unevaluable event [Not Recovered/Not Resolved]
  - Hypoacusis [Unknown]
  - Therapy interrupted [Unknown]

NARRATIVE: CASE EVENT DATE: 20230101
